FAERS Safety Report 4846097-6 (Version None)
Quarter: 2005Q4

REPORT INFORMATION
  Report Type: 
  Country: None (occurrence: None)
  Receive Date: 20051201
  Receipt Date: 20051118
  Transmission Date: 20060501
  Serious: Yes (Hospitalization)
  Sender: FDA-Public Use
  Company Number: 2005127971

PATIENT
  Age: 76 Year
  Sex: Female

DRUGS (5)
  1. ZYVOX [Suspect]
     Indication: ENTEROCOCCAL INFECTION
     Dosage: 1200 MG (600 MG, 2 IN 1 D), INTRAVENOUS
     Route: 042
     Dates: start: 20050727, end: 20050807
  2. ALL OTHER THERAPEUTIC PRODUCTS (ALL OTHER THERAPEUTIC PRODUCTS) [Concomitant]
  3. TAZOBAC (PIPERACILLIN SODIUM, TAZOBACTAM SODIUM) [Concomitant]
  4. CIPROFLOXACIN [Concomitant]
  5. MERONEM (MEROPENEM) [Concomitant]

REACTIONS (1)
  - PATHOGEN RESISTANCE [None]
